FAERS Safety Report 5763302-2 (Version None)
Quarter: 2008Q2

REPORT INFORMATION
  Report Type: 
  Country: None (occurrence: None)
  Receive Date: 20080602
  Receipt Date: 20080319
  Transmission Date: 20081010
  Serious: No
  Sender: FDA-Public Use
  Company Number: PHEH2008US02963

PATIENT
  Age: 58 Year
  Sex: Female

DRUGS (1)
  1. TEKTURNA [Suspect]
     Indication: HYPERTENSION
     Dosage: 150 MG, QD
     Dates: start: 20080301

REACTIONS (4)
  - DIZZINESS [None]
  - HEART RATE INCREASED [None]
  - MALAISE [None]
  - POLLAKIURIA [None]
